FAERS Safety Report 10471176 (Version 1)
Quarter: 2014Q3

REPORT INFORMATION
  Report Type: Spontaneous
  Country: CA (occurrence: CA)
  Receive Date: 20140923
  Receipt Date: 20140923
  Transmission Date: 20150326
  Serious: Yes (Other)
  Sender: FDA-Public Use
  Company Number: CA-BAYER-2012-121784

PATIENT
  Weight: 2.9 kg

DRUGS (14)
  1. PANTOPRAZOLE [Suspect]
     Active Substance: PANTOPRAZOLE SODIUM
     Route: 064
  2. SUMATRIPTAN [Suspect]
     Active Substance: SUMATRIPTAN
     Route: 064
  3. HYDROXYZINE [Suspect]
     Active Substance: HYDROXYZINE\HYDROXYZINE HYDROCHLORIDE
     Dosage: 100 ML, UNK
     Route: 064
  4. INSULIN HUMAN [Suspect]
     Active Substance: INSULIN HUMAN
     Route: 064
  5. METOCLOPRAMIDE. [Suspect]
     Active Substance: METOCLOPRAMIDE
     Route: 064
  6. OXAZEPAM. [Suspect]
     Active Substance: OXAZEPAM
     Route: 064
  7. NOVORAPID [Suspect]
     Active Substance: INSULIN ASPART
     Route: 064
  8. COSYNTROPIN. [Suspect]
     Active Substance: COSYNTROPIN
     Route: 064
  9. MULTIVITAMIN [Suspect]
     Active Substance: VITAMINS
     Route: 064
  10. DIPHENHYDRAMINE [Suspect]
     Active Substance: DIPHENHYDRAMINE
     Dosage: 200 ML, UNK
     Route: 064
  11. ONDANSETRON [Suspect]
     Active Substance: ONDANSETRON
     Indication: HYPEREMESIS GRAVIDARUM
     Route: 064
  12. THIAMINE CHLORIDE [Suspect]
     Active Substance: THIAMINE
     Dosage: UNK
     Route: 064
  13. ASPIRIN. [Suspect]
     Active Substance: ASPIRIN
     Route: 064
  14. HYDROMORPHONE [Suspect]
     Active Substance: HYDROMORPHONE
     Route: 064

REACTIONS (3)
  - Foetal growth restriction [Unknown]
  - Hypoglycaemia [Unknown]
  - Foetal exposure during pregnancy [None]
